FAERS Safety Report 13896396 (Version 1)
Quarter: 2017Q3

REPORT INFORMATION
  Report Type: Spontaneous
  Country: US (occurrence: None)
  Receive Date: 20170815
  Receipt Date: 20170815
  Transmission Date: 20171127
  Serious: Yes (Other)
  Sender: FDA-Public Use
  Company Number: None

PATIENT
  Age: 65 Year
  Sex: Male
  Weight: 121 kg

DRUGS (1)
  1. PIRFENIDONE. [Suspect]
     Active Substance: PIRFENIDONE
     Indication: LUNG DISORDER
     Dosage: 3 TAB TID PO
     Route: 048
     Dates: start: 20161209, end: 20170414

REACTIONS (2)
  - Photosensitivity reaction [None]
  - Pruritus [None]

NARRATIVE: CASE EVENT DATE: 20170414
